FAERS Safety Report 8250575-X (Version None)
Quarter: 2012Q2

REPORT INFORMATION
  Report Type: 
  Country: None (occurrence: None)
  Receive Date: 20120402
  Receipt Date: 20120402
  Transmission Date: 20120825
  Serious: No
  Sender: FDA-Public Use
  Company Number: None

PATIENT
  Age: 48 Year
  Sex: Male
  Weight: 90.718 kg

DRUGS (1)
  1. ALLOPURINOL [Suspect]
     Indication: GOUT
     Dosage: 300MG
     Route: 048
     Dates: start: 20120115, end: 20120401

REACTIONS (4)
  - PRODUCT SUBSTITUTION ISSUE [None]
  - DRUG EFFECT DECREASED [None]
  - CONDITION AGGRAVATED [None]
  - GOUT [None]
